FAERS Safety Report 15578594 (Version 1)
Quarter: 2018Q4

REPORT INFORMATION
  Report Type: Spontaneous
  Country: US (occurrence: US)
  Receive Date: 20181029
  Receipt Date: 20181029
  Transmission Date: 20190205
  Serious: Yes (Hospitalization)
  Sender: FDA-Public Use
  Company Number: None

PATIENT
  Age: 29 Year
  Sex: Female
  Weight: 48.4 kg

DRUGS (1)
  1. ASPIRIN. [Suspect]
     Active Substance: ASPIRIN
     Dates: end: 20181010

REACTIONS (4)
  - Ill-defined disorder [None]
  - Scar [None]
  - Axillary nerve injury [None]
  - Procedural haemorrhage [None]

NARRATIVE: CASE EVENT DATE: 20181010
